FAERS Safety Report 4648246-1 (Version None)
Quarter: 2005Q2

REPORT INFORMATION
  Report Type: 
  Country: None (occurrence: None)
  Receive Date: 20050331
  Receipt Date: 20050209
  Transmission Date: 20051028
  Serious: No
  Sender: FDA-Public Use
  Company Number: 05P-163-0290020-00

PATIENT
  Age: 46 Year
  Sex: Female
  Weight: 58.9676 kg

DRUGS (7)
  1. HUMIRA [Suspect]
     Indication: ARTHRITIS
     Dosage: 40 MG, 1 IN 2 WK, SUBCUTANEOUS
     Route: 058
     Dates: start: 20041001
  2. HUMIRA [Suspect]
     Indication: IMMUNE SYSTEM DISORDER
     Dosage: 40 MG, 1 IN 2 WK, SUBCUTANEOUS
     Route: 058
     Dates: start: 20041001
  3. METHOTREXATE SODIUM [Concomitant]
  4. OMEPRAZOLE [Concomitant]
  5. LEXAPRO [Concomitant]
  6. FOLIC ACID [Concomitant]
  7. TRILOSATE [Concomitant]

REACTIONS (2)
  - INJECTION SITE PRURITUS [None]
  - INJECTION SITE REACTION [None]
